FAERS Safety Report 15042506 (Version 1)
Quarter: 2018Q2

REPORT INFORMATION
  Report Type: Report from Study
  Country: US (occurrence: US)
  Receive Date: 20180621
  Receipt Date: 20180621
  Transmission Date: 20180711
  Serious: Yes (Death, Hospitalization, Other)
  Sender: FDA-Public Use
  Company Number: US-BAYER-2016-150053

PATIENT
  Age: 68 Year
  Sex: Male

DRUGS (4)
  1. NEXAVAR [Suspect]
     Active Substance: SORAFENIB
     Indication: HEPATOCELLULAR CARCINOMA
     Dosage: UNK
     Dates: start: 201606
  2. NEXAVAR [Suspect]
     Active Substance: SORAFENIB
     Indication: HEPATOCELLULAR CARCINOMA
     Dosage: 400 MG, QD
     Route: 048
     Dates: start: 20161029
  3. NEXAVAR [Suspect]
     Active Substance: SORAFENIB
     Indication: HEPATOCELLULAR CARCINOMA
     Dosage: 400 MG, QD
     Route: 048
     Dates: start: 20160724, end: 20161018
  4. ONDANSETRON [Concomitant]
     Active Substance: ONDANSETRON

REACTIONS (12)
  - Fatigue [Not Recovered/Not Resolved]
  - Constipation [None]
  - Diarrhoea [Not Recovered/Not Resolved]
  - Laboratory test abnormal [None]
  - Urinary tract infection [None]
  - Peripheral swelling [Not Recovered/Not Resolved]
  - Intra-abdominal fluid collection [None]
  - Radiotherapy [None]
  - Death [Fatal]
  - Irritability [None]
  - Hepatic cirrhosis [None]
  - Confusional state [None]

NARRATIVE: CASE EVENT DATE: 2016
